FAERS Safety Report 23587424 (Version 1)
Quarter: 2024Q1

REPORT INFORMATION
  Report Type: Spontaneous
  Country: US (occurrence: US)
  Receive Date: 20240301
  Receipt Date: 20240301
  Transmission Date: 20240410
  Serious: Yes (Other)
  Sender: FDA-Public Use
  Company Number: US-PFIZER INC-PV202400028484

PATIENT
  Age: 44 Year
  Sex: Male
  Weight: 125.17 kg

DRUGS (4)
  1. ZIRABEV [Suspect]
     Active Substance: BEVACIZUMAB-BVZR
     Indication: Colon cancer stage IV
     Dosage: 5 MG/KG
  2. OXALIPLATIN [Suspect]
     Active Substance: OXALIPLATIN
     Indication: Colon cancer stage IV
     Dosage: Q14
     Dates: start: 20231016
  3. FLUOROURACIL [Suspect]
     Active Substance: FLUOROURACIL
     Indication: Colon cancer stage IV
     Dosage: Q14
     Dates: start: 20231016
  4. LEUCOVORIN [Suspect]
     Active Substance: LEUCOVORIN\LEUCOVORIN CALCIUM

REACTIONS (9)
  - Neuropathy peripheral [Not Recovered/Not Resolved]
  - Condition aggravated [Not Recovered/Not Resolved]
  - Colectomy [Unknown]
  - Protein urine present [Unknown]
  - Pain in extremity [Unknown]
  - Pain in extremity [Unknown]
  - Muscle spasms [Unknown]
  - Blood glucose increased [Unknown]
  - Off label use [Unknown]
